FAERS Safety Report 16741945 (Version 2)
Quarter: 2019Q4

REPORT INFORMATION
  Report Type: Report from Study
  Country: IT (occurrence: IT)
  Receive Date: 20190826
  Receipt Date: 20191016
  Transmission Date: 20200122
  Serious: Yes (Other)
  Sender: FDA-Public Use
  Company Number: IT-ELI_LILLY_AND_COMPANY-IT201908006044

PATIENT
  Age: 83 Year
  Sex: Female

DRUGS (1)
  1. INSULIN, LISPRO [Suspect]
     Active Substance: INSULIN LISPRO
     Indication: DIABETES MELLITUS
     Dosage: 34 INTERNATIONAL UNIT, UNKNOWN
     Route: 058
     Dates: start: 20190502

REACTIONS (7)
  - Hypokalaemia [Recovering/Resolving]
  - Unresponsive to stimuli [Unknown]
  - Hyperhidrosis [Recovering/Resolving]
  - Oedema [Recovering/Resolving]
  - Medication error [Recovering/Resolving]
  - Vomiting [Recovering/Resolving]
  - Hypoglycaemia [Unknown]

NARRATIVE: CASE EVENT DATE: 20190508
